FAERS Safety Report 16155213 (Version 1)
Quarter: 2019Q2

REPORT INFORMATION
  Report Type: Spontaneous
  Country: BR (occurrence: BR)
  Receive Date: 20190403
  Receipt Date: 20190403
  Transmission Date: 20190711
  Serious: Yes (Life-Threatening)
  Sender: FDA-Public Use
  Company Number: BR-MYLANLABS-2019M1031334

PATIENT
  Sex: Male

DRUGS (1)
  1. LEPONEX 100 MG [Suspect]
     Active Substance: CLOZAPINE
     Indication: AUTISM SPECTRUM DISORDER
     Dosage: UNK

REACTIONS (5)
  - Salivary hypersecretion [Unknown]
  - Sleep disorder [Unknown]
  - Product use in unapproved indication [Unknown]
  - Choking [Unknown]
  - Product availability issue [Unknown]
